FAERS Safety Report 19183733 (Version 1)
Quarter: 2021Q2

REPORT INFORMATION
  Report Type: Spontaneous
  Country: US (occurrence: US)
  Receive Date: 20210426
  Receipt Date: 20210426
  Transmission Date: 20210717
  Serious: Yes (Death)
  Sender: FDA-Public Use
  Company Number: None

PATIENT
  Age: 81 Year
  Sex: Female

DRUGS (21)
  1. LEFLUNOMIDE. [Concomitant]
     Active Substance: LEFLUNOMIDE
  2. SERTRALINE [Concomitant]
     Active Substance: SERTRALINE HYDROCHLORIDE
  3. SUCRALFATE. [Concomitant]
     Active Substance: SUCRALFATE
  4. ATROPINE. [Concomitant]
     Active Substance: ATROPINE
  5. TRAMADOL. [Concomitant]
     Active Substance: TRAMADOL
  6. ALLOPURINOL. [Concomitant]
     Active Substance: ALLOPURINOL
  7. ONDANSETRON [Concomitant]
     Active Substance: ONDANSETRON
  8. NYSTATIN SUSPENSION [Concomitant]
     Active Substance: NYSTATIN
  9. SCOPOLAMINE [Concomitant]
     Active Substance: SCOPOLAMINE
  10. VITAMIN D [Concomitant]
     Active Substance: VITAMIN D NOS
  11. NYSTOP [Concomitant]
     Active Substance: NYSTATIN
  12. HYDROXYCHLOROQUINE [Concomitant]
     Active Substance: HYDROXYCHLOROQUINE
  13. HYDROCORTISONE. [Concomitant]
     Active Substance: HYDROCORTISONE
  14. PROMETHAZINE [Concomitant]
     Active Substance: PROMETHAZINE HYDROCHLORIDE
  15. HYDROCODONE BITARTRATE AND ACETAMINOPHEN [Concomitant]
     Active Substance: ACETAMINOPHEN\HYDROCODONE BITARTRATE
  16. LEVOTHYROXINE. [Concomitant]
     Active Substance: LEVOTHYROXINE
  17. AMIODARONE [Concomitant]
     Active Substance: AMIODARONE
  18. LORAZEPAM. [Concomitant]
     Active Substance: LORAZEPAM
  19. OMEPRAZOLE. [Concomitant]
     Active Substance: OMEPRAZOLE
  20. AUGMENTIN [Concomitant]
     Active Substance: AMOXICILLIN\CLAVULANATE POTASSIUM
  21. HUMIRA [Suspect]
     Active Substance: ADALIMUMAB
     Indication: PRODUCT USED FOR UNKNOWN INDICATION
     Dosage: ?          OTHER FREQUENCY:EVERY TWO WEEKS;?
     Route: 058
     Dates: start: 20200715

REACTIONS (1)
  - Death [None]

NARRATIVE: CASE EVENT DATE: 20210425
